FAERS Safety Report 7586391-1 (Version None)
Quarter: 2011Q3

REPORT INFORMATION
  Report Type: 
  Country: None (occurrence: None)
  Receive Date: 20110701
  Receipt Date: 20110624
  Transmission Date: 20111222
  Serious: Yes (Death, Hospitalization)
  Sender: FDA-Public Use
  Company Number: A0932944A

PATIENT
  Age: 60 Year
  Sex: Male

DRUGS (9)
  1. TYLENOL-500 [Concomitant]
  2. NIASPAN [Concomitant]
  3. VICODIN [Concomitant]
  4. ARIXTRA [Suspect]
     Route: 058
     Dates: start: 20110320, end: 20110419
  5. FENTANYL [Concomitant]
  6. DIOVAN [Concomitant]
  7. ACTOS [Concomitant]
  8. METFORMIN HCL [Concomitant]
  9. GLIPIZIDE [Concomitant]

REACTIONS (2)
  - GENERAL PHYSICAL HEALTH DETERIORATION [None]
  - DEATH [None]
